FAERS Safety Report 5220833-1 (Version None)
Quarter: 2007Q1

REPORT INFORMATION
  Report Type: 
  Country: None (occurrence: None)
  Receive Date: 20070126
  Receipt Date: 20070120
  Transmission Date: 20070707
  Serious: Yes (Other)
  Sender: FDA-Public Use
  Company Number: US-AMGEN-US207742

PATIENT
  Sex: Female

DRUGS (8)
  1. NEULASTA [Suspect]
     Indication: CHEMOTHERAPY
     Dates: start: 20070115
  2. VINCRISTINE [Concomitant]
  3. DOXORUBICIN HYDROCHLORIDE [Concomitant]
  4. DACARBAZINE [Concomitant]
  5. BLEOMYCIN [Concomitant]
  6. ARANESP [Concomitant]
     Indication: ANAEMIA OF MALIGNANT DISEASE
  7. DEXAMETHASONE TAB [Concomitant]
  8. ANTIBIOTIC NOS [Concomitant]

REACTIONS (3)
  - ABASIA [None]
  - BONE PAIN [None]
  - WHITE BLOOD CELL COUNT INCREASED [None]
